FAERS Safety Report 6744274-0 (Version None)
Quarter: 2010Q2

REPORT INFORMATION
  Report Type: 
  Country: None (occurrence: None)
  Receive Date: 20100527
  Receipt Date: 20100517
  Transmission Date: 20101027
  Serious: Yes (Life-Threatening, Hospitalization)
  Sender: FDA-Public Use
  Company Number: SE-JNJFOC-20100108082

PATIENT
  Age: 51 Year
  Sex: Female

DRUGS (19)
  1. REMICADE [Suspect]
     Indication: PYODERMA GANGRENOSUM
     Route: 042
  2. PREDNISOLONE [Concomitant]
  3. PREDNISOLONE [Concomitant]
  4. PREDNISOLONE [Concomitant]
  5. ENALAPRIL [Concomitant]
  6. OMEPRAZOLE [Concomitant]
  7. DIFLUCAN [Concomitant]
  8. SIMVASTATIN [Concomitant]
  9. MEROPENEM [Concomitant]
  10. LACTULOSE [Concomitant]
  11. METADON [Concomitant]
  12. METOPROLOL [Concomitant]
  13. FOLACIN [Concomitant]
  14. HYDROMORFON [Concomitant]
  15. BEHEPAN [Concomitant]
  16. VANCOMYCIN HCL [Concomitant]
  17. OXASCAND [Concomitant]
  18. TROMBYL [Concomitant]
  19. FURIX [Concomitant]

REACTIONS (12)
  - CONFUSIONAL STATE [None]
  - CYANOSIS [None]
  - HALLUCINATION, AUDITORY [None]
  - HEARING IMPAIRED [None]
  - HYPOTENSION [None]
  - INFUSION RELATED REACTION [None]
  - ISCHAEMIA [None]
  - LIVEDO RETICULARIS [None]
  - PERIPHERAL COLDNESS [None]
  - PERONEAL NERVE PALSY [None]
  - PYODERMA GANGRENOSUM [None]
  - SEPSIS [None]
